FAERS Safety Report 5942518-6 (Version None)
Quarter: 2008Q4

REPORT INFORMATION
  Report Type: 
  Country: None (occurrence: None)
  Receive Date: 20081103
  Receipt Date: 20081012
  Transmission Date: 20090506
  Serious: Yes (Death)
  Sender: FDA-Public Use
  Company Number: CHPA2008US17953

PATIENT
  Age: 33 Year
  Sex: Female

DRUGS (4)
  1. ASPIRIN [Suspect]
  2. ACETAMINOPHEN [Suspect]
  3. ETHANOL (ETHANOL) [Suspect]
  4. COCAINE (COCAINE) [Suspect]

REACTIONS (1)
  - INTENTIONAL DRUG MISUSE [None]
